FAERS Safety Report 10606012 (Version 1)
Quarter: 2014Q4

REPORT INFORMATION
  Report Type: Spontaneous
  Country: US (occurrence: US)
  Receive Date: 20141125
  Receipt Date: 20141125
  Transmission Date: 20150529
  Serious: No
  Sender: FDA-Public Use
  Company Number: US-BIOGENIDEC-2014BI121042

PATIENT
  Age: 45 Year
  Sex: Female

DRUGS (3)
  1. PROVIGIL [Concomitant]
     Active Substance: MODAFINIL
  2. WELLBUTRIN XL [Concomitant]
     Active Substance: BUPROPION HYDROCHLORIDE
  3. TECFIDERA [Suspect]
     Active Substance: DIMETHYL FUMARATE
     Indication: MULTIPLE SCLEROSIS
     Route: 048
     Dates: end: 20141015

REACTIONS (3)
  - Fatigue [Unknown]
  - Gait disturbance [Unknown]
  - Confusional state [Unknown]
